FAERS Safety Report 8769089 (Version 1)
Quarter: 2012Q4

REPORT INFORMATION
  Report Type: 
  Country: US (occurrence: US)
  Receive Date: 20120904
  Receipt Date: 20120904
  Transmission Date: 20130627
  Serious: No
  Sender: FDA-Public Use
  Company Number: US-AMGEN-USASP2012051704

PATIENT
  Age: 2 Year
  Sex: Female

DRUGS (1)
  1. ENBREL [Suspect]
     Indication: JUVENILE ARTHRITIS
     Dosage: UNK UNK, qwk
     Dates: start: 20120601

REACTIONS (3)
  - Injection site rash [Not Recovered/Not Resolved]
  - Rash erythematous [Unknown]
  - Injection site reaction [Unknown]
